FAERS Safety Report 9397991 (Version 4)
Quarter: 2013Q3

REPORT INFORMATION
  Report Type: Report from Study
  Country: TR (occurrence: TR)
  Receive Date: 20130712
  Receipt Date: 20130829
  Transmission Date: 20140515
  Serious: Yes (Hospitalization)
  Sender: FDA-Public Use
  Company Number: PHHO2013TR008920

PATIENT
  Age: 47 Year
  Sex: Female
  Weight: 104 kg

DRUGS (10)
  1. BLINDED GP2013 [Suspect]
     Indication: RHEUMATOID ARTHRITIS
     Dosage: CODE NOT BROKEN
     Route: 042
     Dates: start: 20130110
  2. BLINDED MABTHERA [Suspect]
     Indication: RHEUMATOID ARTHRITIS
     Dosage: CODE NOT BROKEN
     Route: 042
     Dates: start: 20130110
  3. BLINDED NO TREATMENT RECEIVED [Suspect]
     Indication: RHEUMATOID ARTHRITIS
     Dosage: CODE NOT BROKEN
     Route: 042
     Dates: start: 20130110
  4. PREDNISOLONE SANDOZ [Suspect]
     Indication: RHEUMATOID ARTHRITIS
     Dosage: 2.5 MG, QD
     Route: 048
     Dates: start: 20130503, end: 20130702
  5. PREDNISOLONE SANDOZ [Suspect]
     Dosage: 10 MG/DAY
     Dates: start: 20130705
  6. MTX [Concomitant]
     Indication: RHEUMATOID ARTHRITIS
     Dosage: 20 MG, QW
     Route: 030
     Dates: start: 20120809
  7. ISONIAZID [Concomitant]
     Indication: LATENT TUBERCULOSIS
     Dosage: 300 MG, QD
     Route: 048
     Dates: start: 20121213
  8. DICLOFENAC [Concomitant]
     Indication: RHEUMATOID ARTHRITIS
     Dosage: 100 MG, QD
     Route: 048
     Dates: start: 201206, end: 20130702
  9. PANTOPRAZOLE [Concomitant]
     Indication: ULCER
     Dosage: 40 MG, QD
     Route: 048
     Dates: start: 200406
  10. FOLIC ACID [Concomitant]
     Indication: PROPHYLAXIS
     Dosage: 5 MG, UNK
     Route: 048
     Dates: start: 201207

REACTIONS (1)
  - Pyrexia [Recovered/Resolved]
